FAERS Safety Report 4631310-0 (Version None)
Quarter: 2005Q2

REPORT INFORMATION
  Report Type: 
  Country: None (occurrence: None)
  Receive Date: 20050408
  Receipt Date: 20050404
  Transmission Date: 20051028
  Serious: Yes (Death, Life-Threatening, Hospitalization)
  Sender: FDA-Public Use
  Company Number: US-MERCK-0504USA00413

PATIENT

DRUGS (2)
  1. CANCIDAS [Suspect]
     Indication: ASPERGILLOSIS
     Route: 042
  2. [COMPOSITION UNSPECIFIED] [Concomitant]
     Route: 065

REACTIONS (1)
  - DEATH [None]
